FAERS Safety Report 18955594 (Version 1)
Quarter: 2021Q1

REPORT INFORMATION
  Report Type: Spontaneous
  Country: DZ (occurrence: DZ)
  Receive Date: 20210301
  Receipt Date: 20210301
  Transmission Date: 20210420
  Serious: Yes (Death)
  Sender: FDA-Public Use
  Company Number: DZ-PFIZER INC-2021204045

PATIENT
  Age: 33 Year
  Sex: Female

DRUGS (1)
  1. SUTENT [Suspect]
     Active Substance: SUNITINIB MALATE
     Indication: BREAST CANCER METASTATIC
     Dosage: 50 MG, CYCLIC (DAILY, 4 WEEKS ON/2 WEEKS OFF)

REACTIONS (4)
  - Neoplasm progression [Fatal]
  - Off label use [Unknown]
  - Fatigue [Fatal]
  - Decreased appetite [Fatal]
